FAERS Safety Report 17251082 (Version 1)
Quarter: 2020Q1

REPORT INFORMATION
  Report Type: Spontaneous
  Country: FR (occurrence: FR)
  Receive Date: 20200109
  Receipt Date: 20200109
  Transmission Date: 20200409
  Serious: Yes (Hospitalization)
  Sender: FDA-Public Use
  Company Number: FR-ACCORD-168854

PATIENT
  Age: 68 Year
  Sex: Male
  Weight: 62 kg

DRUGS (3)
  1. ONDANSETRON ACCORD [Concomitant]
     Active Substance: ONDANSETRON
     Indication: PREMEDICATION
     Route: 042
     Dates: start: 20190930, end: 20190930
  2. METHYLPREDNISOLONE MYLAN [Concomitant]
     Active Substance: METHYLPREDNISOLONE
     Indication: PREMEDICATION
     Route: 042
     Dates: start: 20190930, end: 20190930
  3. OXALIPLATIN ACCORD [Suspect]
     Active Substance: OXALIPLATIN
     Indication: PANCREATIC CARCINOMA METASTATIC
     Route: 041
     Dates: start: 20190930, end: 20190930

REACTIONS (6)
  - Tachycardia [Recovered/Resolved]
  - Feeling hot [Recovered/Resolved]
  - Infusion related reaction [Recovered/Resolved]
  - Hypertension [Recovered/Resolved]
  - Erythema [Recovered/Resolved]
  - Pruritus [Recovered/Resolved]

NARRATIVE: CASE EVENT DATE: 20190930
